FAERS Safety Report 8220958-2 (Version None)
Quarter: 2012Q1

REPORT INFORMATION
  Report Type: 
  Country: None (occurrence: None)
  Receive Date: 20120320
  Receipt Date: 20120124
  Transmission Date: 20120608
  Serious: Yes (Hospitalization, Other)
  Sender: FDA-Public Use
  Company Number: US-BAYER-201027525NA

PATIENT
  Age: 40 Year
  Sex: Female
  Weight: 73.016 kg

DRUGS (7)
  1. VIBRAMYCIN [Concomitant]
     Indication: CELLULITIS
     Dosage: 100 MG (DAILY DOSE), ,
     Dates: start: 20070403
  2. KEFLEX [Concomitant]
     Indication: CELLULITIS
     Dosage: 500 MG (DAILY DOSE), ,
  3. YAZ [Suspect]
     Indication: CONTRACEPTION
     Route: 048
     Dates: start: 20060601, end: 20070401
  4. MOTRIN [Concomitant]
     Indication: PAIN
     Dosage: 800 MG (DAILY DOSE), ,
     Dates: start: 20070403
  5. ZOLPIDEM [Concomitant]
     Indication: INSOMNIA
     Dosage: 5 MG (DAILY DOSE), , ORAL
     Route: 048
  6. ACETAMINOPHEN [Concomitant]
     Indication: PAIN
     Dosage: 325 MG (DAILY DOSE), , ORAL
     Route: 048
     Dates: start: 20070404
  7. ANCEF [Concomitant]
     Indication: CELLULITIS
     Route: 042

REACTIONS (5)
  - RASH [None]
  - OEDEMA PERIPHERAL [None]
  - THROMBOSIS [None]
  - PAIN IN EXTREMITY [None]
  - DEEP VEIN THROMBOSIS [None]
